FAERS Safety Report 19593867 (Version 2)
Quarter: 2021Q3

REPORT INFORMATION
  Report Type: Spontaneous
  Country: PT (occurrence: PT)
  Receive Date: 20210722
  Receipt Date: 20210803
  Transmission Date: 20211014
  Serious: Yes (Hospitalization, Disabling)
  Sender: FDA-Public Use
  Company Number: PT-MYLANLABS-2021M1043360

PATIENT
  Age: 41 Year
  Sex: Female
  Weight: 76 kg

DRUGS (2)
  1. ADALIMUMAB [Suspect]
     Active Substance: ADALIMUMAB
     Indication: RHEUMATOID ARTHRITIS
     Dosage: 40 MILLIGRAM, CYCLE
     Route: 058
     Dates: start: 2010, end: 20210109
  2. PFIZER?BIONTECH COVID?19 VACCINE [Interacting]
     Active Substance: TOZINAMERAN
     Indication: COVID-19 IMMUNISATION
     Dosage: 2 DOSAGE FORM, TOTAL
     Route: 030
     Dates: start: 20201227

REACTIONS (5)
  - Motor dysfunction [Recovering/Resolving]
  - Sensory disturbance [Recovering/Resolving]
  - Drug interaction [Unknown]
  - Myelitis [Recovering/Resolving]
  - Neck pain [Recovering/Resolving]

NARRATIVE: CASE EVENT DATE: 20210103
